FAERS Safety Report 13042473 (Version 3)
Quarter: 2018Q2

REPORT INFORMATION
  Report Type: Spontaneous
  Country: FI (occurrence: FI)
  Receive Date: 20161219
  Receipt Date: 20180430
  Transmission Date: 20180711
  Serious: Yes (Hospitalization, Other)
  Sender: FDA-Public Use
  Company Number: PHHY2016FI173393

PATIENT
  Age: 63 Year
  Sex: Male

DRUGS (4)
  1. ZAROXOLYN [Suspect]
     Active Substance: METOLAZONE
     Indication: PRODUCT USED FOR UNKNOWN INDICATION
     Dosage: PRN (AS NEEDED)
     Route: 065
  2. ENTRESTO [Suspect]
     Active Substance: SACUBITRIL\VALSARTAN
     Indication: CARDIAC FAILURE
     Dosage: 50 MG, BID
     Route: 065
     Dates: start: 201609, end: 201612
  3. FURESIS [Concomitant]
     Active Substance: FUROSEMIDE
     Indication: PRODUCT USED FOR UNKNOWN INDICATION
     Dosage: UNK (HIGH DOSE)
     Route: 065
  4. ZAROXOLYN [Suspect]
     Active Substance: METOLAZONE
     Dosage: UNK (SLIGHTLY LARGER DOSE )
     Route: 065
     Dates: start: 201612, end: 201612

REACTIONS (6)
  - Respiratory tract infection [Unknown]
  - Blood creatinine increased [Recovered/Resolved]
  - Malaise [Unknown]
  - Dyspnoea [Unknown]
  - Cardiac failure [Unknown]
  - Hypoperfusion [Recovered/Resolved]

NARRATIVE: CASE EVENT DATE: 201612
